FAERS Safety Report 10886209 (Version 1)
Quarter: 2015Q1

REPORT INFORMATION
  Report Type: Spontaneous
  Country: US (occurrence: US)
  Receive Date: 20150304
  Receipt Date: 20150304
  Transmission Date: 20150721
  Serious: Yes (Death, Hospitalization)
  Sender: FDA-Public Use
  Company Number: US-SIGMA-TAU US-2015STPI000112

PATIENT
  Age: 79 Year
  Sex: Male

DRUGS (1)
  1. MATULANE [Suspect]
     Active Substance: PROCARBAZINE HYDROCHLORIDE
     Indication: PROSTATE CANCER
     Dosage: 100 MG, QD
     Dates: start: 20140916

REACTIONS (5)
  - Influenza [Fatal]
  - Renal failure [None]
  - Ischaemic hepatitis [None]
  - Septic shock [Fatal]
  - Respiratory failure [None]

NARRATIVE: CASE EVENT DATE: 20150205
